FAERS Safety Report 5389770-6 (Version None)
Quarter: 2007Q3

REPORT INFORMATION
  Report Type: 
  Country: None (occurrence: None)
  Receive Date: 20070717
  Receipt Date: 20070713
  Transmission Date: 20080115
  Serious: Yes (Hospitalization, Other)
  Sender: FDA-Public Use
  Company Number: US-MERCK-0605USA04316

PATIENT
  Age: 47 Year
  Sex: Male

DRUGS (7)
  1. FOSAMAX [Suspect]
     Indication: PROPHYLAXIS
     Route: 048
     Dates: start: 19990219, end: 20020101
  2. AREDIA [Suspect]
     Indication: PROPHYLAXIS
     Route: 065
     Dates: start: 20020101, end: 20030101
  3. ZOMETA [Suspect]
     Indication: PROPHYLAXIS
     Route: 065
     Dates: start: 20030101, end: 20050101
  4. CALCIUM CITRATE AND VITAMIN D (UNSPECIFIED) [Concomitant]
     Route: 065
  5. PREVACID [Concomitant]
     Route: 065
  6. VITAMINS (UNSPECIFIED) [Concomitant]
     Route: 065
  7. PLAQUENIL [Concomitant]
     Route: 065
     Dates: start: 20000101

REACTIONS (7)
  - ANXIETY [None]
  - CATARACT [None]
  - DEPRESSION [None]
  - OSTEONECROSIS [None]
  - TENDON INJURY [None]
  - VIRAL PERICARDITIS [None]
  - WEIGHT DECREASED [None]
